FAERS Safety Report 12518032 (Version 1)
Quarter: 2016Q2

REPORT INFORMATION
  Report Type: Spontaneous
  Country: CN (occurrence: CN)
  Receive Date: 20160630
  Receipt Date: 20160630
  Transmission Date: 20160815
  Serious: Yes (Other)
  Sender: FDA-Public Use
  Company Number: CN-JNJFOC-20160623772

PATIENT
  Age: 26 Year
  Sex: Female

DRUGS (3)
  1. DEXRAZOXANE. [Concomitant]
     Active Substance: DEXRAZOXANE
     Indication: CARDIOTOXICITY
     Route: 065
  2. DOXORUBICIN HYDROCHLORIDE. [Suspect]
     Active Substance: DOXORUBICIN HYDROCHLORIDE
     Indication: CHONDROSARCOMA
     Dosage: EVERY OTHER DAY FOR 5 DAYS
     Route: 042
  3. NEDAPLATIN [Suspect]
     Active Substance: NEDAPLATIN
     Indication: CHONDROSARCOMA
     Dosage: FOR 2 CONSECUTIVE DAYS
     Route: 065

REACTIONS (3)
  - Sinus bradycardia [Recovered/Resolved]
  - Off label use [Unknown]
  - Product use issue [Unknown]
